FAERS Safety Report 11134269 (Version 2)
Quarter: 2015Q2

REPORT INFORMATION
  Report Type: Report from Study
  Country: DE (occurrence: DE)
  Receive Date: 20150524
  Receipt Date: 20150619
  Transmission Date: 20150821
  Serious: Yes (Death, Hospitalization)
  Sender: FDA-Public Use
  Company Number: DE-BRISTOL-MYERS SQUIBB COMPANY-BMS-2015-032825

PATIENT
  Age: 78 Year
  Sex: Male
  Weight: 75 kg

DRUGS (17)
  1. VITAMIN B6 [Concomitant]
     Active Substance: PYRIDOXINE HYDROCHLORIDE
     Indication: PREMEDICATION
     Dosage: 100 MG, ONE TIME DOSE
     Route: 065
     Dates: start: 20150430, end: 20150430
  2. CALCIUM [Concomitant]
     Active Substance: CALCIUM
     Dosage: UNK, QWK
     Route: 065
     Dates: start: 20150409, end: 20150416
  3. 5-FLUOROURACIL                     /00098801/ [Concomitant]
     Active Substance: FLUOROURACIL
     Indication: COLORECTAL CANCER METASTATIC
     Dosage: 2800 MG/M2, Q2WK
     Route: 042
     Dates: start: 20150225
  4. FOLINIC ACID [Concomitant]
     Active Substance: LEUCOVORIN
     Indication: COLORECTAL CANCER METASTATIC
     Dosage: 28.571 MG/M2, Q2WK
     Route: 042
     Dates: start: 20150225
  5. CETUXIMAB [Suspect]
     Active Substance: CETUXIMAB
     Dosage: 250 MG/M2, UNK
     Route: 042
     Dates: start: 20150430, end: 20150430
  6. VITAMIN K [Concomitant]
     Active Substance: PHYTONADIONE
     Indication: PROPHYLAXIS
     Route: 065
  7. MAGNESIUM [Concomitant]
     Active Substance: MAGNESIUM
     Indication: PREMEDICATION
     Dosage: UNK, QWK
     Route: 065
     Dates: start: 20150226, end: 20150226
  8. CLEMASTIN [Concomitant]
     Active Substance: CLEMASTINE
     Indication: PREMEDICATION
     Route: 065
  9. CALCIUM [Concomitant]
     Active Substance: CALCIUM
     Indication: PREMEDICATION
     Dosage: UNK, QWK
     Route: 065
     Dates: start: 20150226, end: 20150226
  10. OXALIPLATIN. [Concomitant]
     Active Substance: OXALIPLATIN
     Indication: COLORECTAL CANCER METASTATIC
     Dosage: 100 MG/M2, Q2WK
     Route: 042
     Dates: start: 20150225
  11. GRANISETRON [Concomitant]
     Active Substance: GRANISETRON
     Indication: PREMEDICATION
     Route: 065
  12. CALCIUM [Concomitant]
     Active Substance: CALCIUM
     Dosage: UNK, QWK
     Route: 065
     Dates: start: 20150423, end: 20150430
  13. CETUXIMAB [Suspect]
     Active Substance: CETUXIMAB
     Indication: COLORECTAL CANCER METASTATIC
     Dosage: 400 MG/M2, UNK
     Route: 042
     Dates: start: 20150226, end: 20150430
  14. MAGNESIUM [Concomitant]
     Active Substance: MAGNESIUM
     Dosage: UNK, QWK
     Route: 065
     Dates: start: 20150409, end: 20150416
  15. MAGNESIUM [Concomitant]
     Active Substance: MAGNESIUM
     Dosage: UNK, ONE TIME DOSE
     Route: 065
     Dates: start: 20150423, end: 20150430
  16. POTASSIUM CHLORIDE. [Concomitant]
     Active Substance: POTASSIUM CHLORIDE
     Indication: PREMEDICATION
     Dosage: 1 DF, QWK
     Route: 065
     Dates: start: 20150409, end: 20150430
  17. RANITIDINE [Concomitant]
     Active Substance: RANITIDINE\RANITIDINE HYDROCHLORIDE
     Indication: PREMEDICATION
     Dosage: UNK
     Route: 065
     Dates: start: 20150226, end: 20150226

REACTIONS (2)
  - Diarrhoea [Unknown]
  - Sepsis [Fatal]

NARRATIVE: CASE EVENT DATE: 20150506
